FAERS Safety Report 20634271 (Version 2)
Quarter: 2022Q2

REPORT INFORMATION
  Report Type: Spontaneous
  Country: IN (occurrence: IN)
  Receive Date: 20220325
  Receipt Date: 20220613
  Transmission Date: 20220721
  Serious: Yes (Other)
  Sender: FDA-Public Use
  Company Number: IN-PFIZER INC-2021016402

PATIENT
  Age: 48 Year
  Sex: Female
  Weight: 63 kg

DRUGS (9)
  1. DACOMITINIB [Suspect]
     Active Substance: DACOMITINIB
     Dosage: 30 MG, 1X/DAY
     Route: 048
     Dates: start: 20201123, end: 20210419
  2. DACOMITINIB [Suspect]
     Active Substance: DACOMITINIB
     Dosage: 30 MG, 1X/DAY
     Route: 048
     Dates: start: 20210111
  3. DACOMITINIB [Suspect]
     Active Substance: DACOMITINIB
     Dosage: 30 MG, 1X/DAY
     Route: 048
     Dates: start: 20210208, end: 20210419
  4. DACOMITINIB [Suspect]
     Active Substance: DACOMITINIB
     Dosage: 15 MG, 1X/DAY
     Route: 048
     Dates: start: 20210419
  5. CALCIUM CARBONATE\CHOLECALCIFEROL [Concomitant]
     Active Substance: CALCIUM CARBONATE\CHOLECALCIFEROL
  6. ZOLEDRONIC ACID [Concomitant]
     Active Substance: ZOLEDRONIC ACID
     Dosage: 4MG IN 100ML NS OVER 20 MINS
  7. METOCLOPRAMIDE HYDROCHLORIDE [Concomitant]
     Active Substance: METOCLOPRAMIDE HYDROCHLORIDE
  8. CLINDAMYCIN [Concomitant]
     Active Substance: CLINDAMYCIN
  9. LACTO CALAMINE [CALAMINE;HAMAMELIS SPP.;PHENOL;ZINC OXIDE] [Concomitant]

REACTIONS (12)
  - Carcinoembryonic antigen increased [Unknown]
  - Pleural thickening [Unknown]
  - Pulmonary mass [Unknown]
  - Paraesthesia [Unknown]
  - Osteolysis [Unknown]
  - Rash [Unknown]
  - Pain [Unknown]
  - Blood pressure increased [Unknown]
  - Neoplasm progression [Unknown]
  - Lymphadenopathy mediastinal [Unknown]
  - Physical examination abnormal [Unknown]
  - Heart rate increased [Unknown]

NARRATIVE: CASE EVENT DATE: 20210101
